FAERS Safety Report 23368859 (Version 1)
Quarter: 2024Q1

REPORT INFORMATION
  Report Type: Spontaneous
  Country: US (occurrence: US)
  Receive Date: 20240105
  Receipt Date: 20240105
  Transmission Date: 20240410
  Serious: Yes (Other)
  Sender: FDA-Public Use
  Company Number: US-VALIDUS PHARMACEUTICALS LLC-US-VDP-2023-019065

PATIENT

DRUGS (1)
  1. LOPRESSOR [Suspect]
     Active Substance: METOPROLOL TARTRATE
     Indication: Product used for unknown indication
     Dosage: UNK
     Route: 065

REACTIONS (11)
  - Enterococcal infection [Unknown]
  - Pancreatic mass [Unknown]
  - Liver disorder [Unknown]
  - Pyrexia [Unknown]
  - Mental disorder [Unknown]
  - Liver function test increased [Unknown]
  - Device occlusion [Unknown]
  - Scan [Unknown]
  - Spinal laminectomy [Unknown]
  - Diarrhoea [Unknown]
  - Jaundice [Unknown]
